FAERS Safety Report 7252925-X (Version None)
Quarter: 2011Q1

REPORT INFORMATION
  Report Type: 
  Country: None (occurrence: None)
  Receive Date: 20110129
  Receipt Date: 20100305
  Transmission Date: 20110831
  Serious: No
  Sender: FDA-Public Use
  Company Number: US-ABBOTT-10P-163-0631827-00

PATIENT
  Sex: Female
  Weight: 74.002 kg

DRUGS (2)
  1. HUMIRA [Suspect]
     Route: 058
     Dates: start: 20090701
  2. HUMIRA [Suspect]
     Indication: SPONDYLITIS
     Route: 058
     Dates: start: 20080101, end: 20090701

REACTIONS (2)
  - HERPES ZOSTER [None]
  - DRUG INEFFECTIVE [None]
